FAERS Safety Report 15091145 (Version 1)
Quarter: 2018Q2

REPORT INFORMATION
  Report Type: Spontaneous
  Country: US (occurrence: US)
  Receive Date: 20180629
  Receipt Date: 20180629
  Transmission Date: 20180711
  Serious: No
  Sender: FDA-Public Use
  Company Number: US-AMGEN-USASP2015032165

PATIENT
  Age: 66 Year
  Sex: Female

DRUGS (1)
  1. PROLIA [Suspect]
     Active Substance: DENOSUMAB
     Indication: PRODUCT USED FOR UNKNOWN INDICATION
     Dosage: UNK
     Route: 065

REACTIONS (8)
  - Pain in jaw [Unknown]
  - Nausea [Unknown]
  - Groin pain [Unknown]
  - Nerve compression [Unknown]
  - Tremor [Unknown]
  - Dizziness [Unknown]
  - Abdominal pain upper [Unknown]
  - Headache [Unknown]
